FAERS Safety Report 24916679 (Version 1)
Quarter: 2025Q1

REPORT INFORMATION
  Report Type: Spontaneous
  Country: US (occurrence: None)
  Receive Date: 20250131
  Receipt Date: 20250131
  Transmission Date: 20250409
  Serious: Yes (Life-Threatening, Hospitalization)
  Sender: FDA-CTU
  Company Number: None

PATIENT
  Age: 65 Year
  Sex: Male
  Weight: 71 kg

DRUGS (4)
  1. ELOTUZUMAB [Suspect]
     Active Substance: ELOTUZUMAB
     Indication: Plasma cell myeloma
     Route: 041
     Dates: start: 20250114, end: 20250128
  2. CARFILZOMIB [Suspect]
     Active Substance: CARFILZOMIB
     Dates: start: 20250114, end: 20250128
  3. DEXAMETHASONE [Suspect]
     Active Substance: DEXAMETHASONE
  4. DOXYCYCLINE [Suspect]
     Active Substance: DOXYCYCLINE

REACTIONS (14)
  - Pyrexia [None]
  - Chills [None]
  - Dyspnoea [None]
  - Cough [None]
  - Tachycardia [None]
  - Parainfluenzae virus infection [None]
  - Urinary retention [None]
  - Malaise [None]
  - Hypotension [None]
  - Tachypnoea [None]
  - Troponin increased [None]
  - Renal failure [None]
  - Hepatic failure [None]
  - Haemofiltration [None]

NARRATIVE: CASE EVENT DATE: 20250129
